FAERS Safety Report 4889033-9 (Version None)
Quarter: 2005Q4

REPORT INFORMATION
  Report Type: 
  Country: None (occurrence: None)
  Receive Date: 20051215
  Receipt Date: 20050407
  Transmission Date: 20060501
  Serious: Yes (Hospitalization, Other)
  Sender: FDA-Public Use
  Company Number: 2005056253

PATIENT
  Age: 61 Year
  Sex: Female
  Weight: 86.1834 kg

DRUGS (4)
  1. BEXTRA [Suspect]
     Indication: PAIN IN EXTREMITY
     Dates: start: 20040426
  2. ATORVASTATIN CALCIUM [Concomitant]
  3. TRIAMTERENE (TRIAMTERENE) [Concomitant]
  4. VERAPAMIL [Concomitant]

REACTIONS (1)
  - PULMONARY EMBOLISM [None]
